FAERS Safety Report 5600041-2 (Version None)
Quarter: 2007Q4

REPORT INFORMATION
  Report Type: 
  Country: None (occurrence: None)
  Receive Date: 20071226
  Receipt Date: 20061204
  Transmission Date: 20080405
  Serious: Yes (Other)
  Sender: FDA-Public Use
  Company Number: 2006-0010783

PATIENT
  Sex: Male

DRUGS (3)
  1. VIREAD [Suspect]
     Indication: HIV INFECTION
  2. TRIZIVIR [Concomitant]
  3. VIRACEPT [Concomitant]

REACTIONS (2)
  - RENAL INJURY [None]
  - RENAL TUBULAR DISORDER [None]
